FAERS Safety Report 7959893-3 (Version None)
Quarter: 2011Q4

REPORT INFORMATION
  Report Type: 
  Country: None (occurrence: None)
  Receive Date: 20111206
  Receipt Date: 20111202
  Transmission Date: 20120403
  Serious: Yes (Hospitalization)
  Sender: FDA-Public Use
  Company Number: GXKR2011DE003517

PATIENT

DRUGS (8)
  1. LYRICA [Suspect]
     Dosage: DAILY DOSE: 75 MG MILLIGRAM(S) EVERY DAY
     Route: 048
     Dates: start: 20080501, end: 20090228
  2. LEVOTHYROXINE SODIUM [Concomitant]
     Dosage: DAILY DOSE: 100 ?G MICROGRAM(S) EVERY DAY
     Route: 048
     Dates: start: 20090101
  3. LYRICA [Suspect]
     Dosage: DAILY DOSE: 150 MG MILLIGRAM(S) EVERY DAY
     Route: 048
     Dates: start: 20090301, end: 20100531
  4. BUSPIRONE HCL [Suspect]
     Dosage: DAILY DOSE: 15 MG MILLIGRAM(S) EVERY DAY
     Route: 048
     Dates: start: 20100301, end: 20110331
  5. ZYPREXA [Suspect]
     Dosage: DAILY DOSE: 25 MG MILLIGRAM(S) EVERY DAY
     Route: 048
     Dates: start: 20110401, end: 20110701
  6. TRIMIPRAMINE MALEATE [Suspect]
     Dosage: DAILY DOSE: 175 MG MILLIGRAM(S) EVERY DAY
     Route: 048
     Dates: start: 20100701
  7. BUSPIRONE HCL [Suspect]
     Dosage: DAILY DOSE: 20 MG MILLIGRAM(S) EVERY DAY
     Route: 048
     Dates: start: 20110401
  8. LYRICA [Suspect]
     Dosage: DAILY DOSE: 300 MG MILLIGRAM(S) EVERY DAY
     Route: 048
     Dates: start: 20110601

REACTIONS (4)
  - BLOOD PRESSURE INCREASED [None]
  - BLOOD CHOLESTEROL INCREASED [None]
  - WEIGHT INCREASED [None]
  - METABOLIC SYNDROME [None]
